FAERS Safety Report 8539840-6 (Version None)
Quarter: 2012Q2

REPORT INFORMATION
  Report Type: 
  Country: None (occurrence: None)
  Receive Date: 20120412
  Receipt Date: 20090513
  Transmission Date: 20120825
  Serious: Yes (Hospitalization)
  Sender: FDA-Public Use
  Company Number: PHEH2009US04778

PATIENT
  Sex: Female

DRUGS (2)
  1. CLOZARIL [Suspect]
  2. ANTIPSYCHOTICS (NO INGREDIENTS/SUBSTANCES) [Suspect]
     Dates: start: 20010101

REACTIONS (3)
  - PSYCHOTIC DISORDER [None]
  - COGNITIVE DISORDER [None]
  - ELECTROCONVULSIVE THERAPY [None]
